FAERS Safety Report 14392438 (Version 1)
Quarter: 2018Q1

REPORT INFORMATION
  Report Type: Spontaneous
  Country: US (occurrence: US)
  Receive Date: 20180116
  Receipt Date: 20180116
  Transmission Date: 20180509
  Serious: Yes (Other)
  Sender: FDA-Public Use
  Company Number: US-PFIZER INC-2018015657

PATIENT
  Sex: Female

DRUGS (1)
  1. NEURONTIN [Suspect]
     Active Substance: GABAPENTIN
     Indication: NEUROPATHY PERIPHERAL
     Dosage: 800 MG, 4X/DAY

REACTIONS (5)
  - Joint dislocation [Unknown]
  - Product use in unapproved indication [Unknown]
  - Fall [Unknown]
  - Drug effect incomplete [Unknown]
  - Upper limb fracture [Unknown]
